FAERS Safety Report 25112211 (Version 1)
Quarter: 2025Q1

REPORT INFORMATION
  Report Type: Spontaneous
  Country: TW (occurrence: TW)
  Receive Date: 20250324
  Receipt Date: 20250324
  Transmission Date: 20250409
  Serious: No
  Sender: PFIZER
  Company Number: TW-PFIZER INC-202500061075

PATIENT

DRUGS (1)
  1. BICILLIN L-A [Suspect]
     Active Substance: PENICILLIN G BENZATHINE

REACTIONS (1)
  - Device breakage [Unknown]
